FAERS Safety Report 8469394-4 (Version None)
Quarter: 2012Q2

REPORT INFORMATION
  Report Type: 
  Country: None (occurrence: None)
  Receive Date: 20120626
  Receipt Date: 20120612
  Transmission Date: 20120825
  Serious: Yes (Other)
  Sender: FDA-Public Use
  Company Number: DE-TEVA-342919GER

PATIENT
  Sex: Female

DRUGS (4)
  1. CALCIUM + VITAMIN D [Concomitant]
  2. BONIVA [Concomitant]
  3. BISOPROLOL-RATIOPHARM 2.5 MG FILMTABLETTEN [Suspect]
     Indication: SUPRAVENTRICULAR EXTRASYSTOLES
     Dosage: 2.5 MILLIGRAM;
     Route: 048
     Dates: start: 20110901
  4. BISOPROLOL-RATIOPHARM 2.5 MG FILMTABLETTEN [Suspect]
     Indication: BLOOD PRESSURE INCREASED

REACTIONS (9)
  - HYPOGLYCAEMIA [None]
  - HEADACHE [None]
  - LIMB DISCOMFORT [None]
  - NAUSEA [None]
  - RIB FRACTURE [None]
  - FALL [None]
  - DIZZINESS [None]
  - LOSS OF CONSCIOUSNESS [None]
  - CONSTIPATION [None]
